FAERS Safety Report 4278870-X (Version None)
Quarter: 2004Q1

REPORT INFORMATION
  Report Type: 
  Country: None (occurrence: None)
  Receive Date: 20040122
  Receipt Date: 20040122
  Transmission Date: 20041129
  Serious: Yes (Life-Threatening, Hospitalization)
  Sender: FDA-Public Use
  Company Number: None

PATIENT
  Age: 56 Year
  Sex: Female
  Weight: 78.4 kg

DRUGS (2)
  1. LITHIUM 300 MG [Suspect]
     Indication: BIPOLAR DISORDER
     Dosage: 300MG/600MG QAM/QPM ORAL
     Route: 048
     Dates: start: 19970501, end: 20040111
  2. LISINOPRIL [Suspect]
     Indication: HYPERTENSION
     Dosage: 10 MG -1/2 TA QD ORAL
     Route: 048
     Dates: start: 20031216, end: 20040111

REACTIONS (5)
  - BLOOD CREATININE INCREASED [None]
  - COMA [None]
  - CONVULSION [None]
  - DIALYSIS [None]
  - DIZZINESS [None]
